FAERS Safety Report 25396339 (Version 1)
Quarter: 2025Q2

REPORT INFORMATION
  Report Type: Spontaneous
  Country: GB (occurrence: GB)
  Receive Date: 20250604
  Receipt Date: 20250604
  Transmission Date: 20250716
  Serious: Yes (Other)
  Sender: PFIZER
  Company Number: None

PATIENT
  Age: 51 Year
  Sex: Female
  Weight: 105 kg

DRUGS (2)
  1. PROVERA [Suspect]
     Active Substance: MEDROXYPROGESTERONE ACETATE
     Indication: Hormone replacement therapy
     Dosage: 10 MG, DAILY, 2 TABLETS
     Dates: start: 20250522, end: 20250531
  2. SEVODYNE [Concomitant]
     Indication: Back pain
     Dates: start: 20110110, end: 20250601

REACTIONS (3)
  - Fluid retention [Recovering/Resolving]
  - Joint swelling [Unknown]
  - Pain [Unknown]

NARRATIVE: CASE EVENT DATE: 20250523
